FAERS Safety Report 14629112 (Version 1)
Quarter: 2018Q1

REPORT INFORMATION
  Report Type: Spontaneous
  Country: US (occurrence: US)
  Receive Date: 20180312
  Receipt Date: 20180312
  Transmission Date: 20180509
  Serious: No
  Sender: FDA-Public Use
  Company Number: None

PATIENT
  Age: 68 Year
  Sex: Male

DRUGS (1)
  1. EPCLUSA [Suspect]
     Active Substance: SOFOSBUVIR\VELPATASVIR

REACTIONS (5)
  - Gastrooesophageal reflux disease [None]
  - Oesophagectomy [None]
  - Oesophageal disorder [None]
  - Drug dose omission [None]
  - Inflammation [None]

NARRATIVE: CASE EVENT DATE: 20180312
